FAERS Safety Report 6128085-5 (Version None)
Quarter: 2009Q1

REPORT INFORMATION
  Report Type: 
  Country: None (occurrence: None)
  Receive Date: 20090323
  Receipt Date: 20090313
  Transmission Date: 20090719
  Serious: Yes (Death)
  Sender: FDA-Public Use
  Company Number: US-JNJFOC-20070201224

PATIENT
  Sex: Female
  Weight: 99.79 kg

DRUGS (7)
  1. ORTHO EVRA [Suspect]
     Indication: CONTRACEPTION
     Route: 062
  2. YASMIN [Suspect]
     Indication: CONTRACEPTION
  3. KLONOPIN [Concomitant]
  4. XANAX [Concomitant]
  5. RISPERDAL [Concomitant]
  6. ABILIFY [Concomitant]
  7. IMIPRAMINE [Concomitant]

REACTIONS (1)
  - PULMONARY EMBOLISM [None]
